FAERS Safety Report 13660065 (Version 2)
Quarter: 2017Q2

REPORT INFORMATION
  Report Type: Spontaneous
  Country: CA (occurrence: CA)
  Receive Date: 20170616
  Receipt Date: 20170623
  Transmission Date: 20170830
  Serious: Yes (Other)
  Sender: FDA-Public Use
  Company Number: CA-CELLTRION INC.-2017CA007009

PATIENT

DRUGS (2)
  1. AZATHIOPRINE. [Concomitant]
     Active Substance: AZATHIOPRINE
     Dosage: UNK
     Route: 065
     Dates: start: 201506
  2. INFLECTRA [Suspect]
     Active Substance: INFLIXIMAB-DYYB
     Indication: CROHN^S DISEASE
     Dosage: 273 MG, CYCLIC, (EVERY 0, 2, 6 WEEKS, THEN EVERY 8 WEEKS)
     Route: 042
     Dates: start: 20170505, end: 20170615

REACTIONS (14)
  - Crohn^s disease [Recovered/Resolved]
  - Hot flush [Recovered/Resolved]
  - Oral herpes [Not Recovered/Not Resolved]
  - Blepharospasm [Unknown]
  - Dizziness [Recovered/Resolved]
  - Pain [Not Recovered/Not Resolved]
  - Pain in extremity [Not Recovered/Not Resolved]
  - Paraesthesia [Unknown]
  - Muscle twitching [Unknown]
  - Urinary incontinence [Unknown]
  - Infectious mononucleosis [Unknown]
  - Fatigue [Not Recovered/Not Resolved]
  - Chills [Unknown]
  - Condition aggravated [Recovered/Resolved]

NARRATIVE: CASE EVENT DATE: 2017
